FAERS Safety Report 10149572 (Version 2)
Quarter: 2014Q2

REPORT INFORMATION
  Report Type: Report from Study
  Country: BR (occurrence: BR)
  Receive Date: 20140502
  Receipt Date: 20140509
  Transmission Date: 20141212
  Serious: No
  Sender: FDA-Public Use
  Company Number: PHHY2014BR051692

PATIENT
  Sex: Female
  Weight: 74 kg

DRUGS (2)
  1. DIOVAN [Suspect]
     Indication: HYPERTENSION
     Dosage: 1 DF (VALS 160 MG), DAILY
     Route: 048
  2. NATRILIX [Concomitant]
     Indication: BLOOD PRESSURE ABNORMAL
     Dosage: UNK UKN, UNK
     Route: 048
     Dates: end: 20121205

REACTIONS (2)
  - Hypertension [Recovered/Resolved]
  - Blood pressure decreased [Unknown]
